FAERS Safety Report 9867109 (Version 1)
Quarter: 2014Q1

REPORT INFORMATION
  Report Type: Spontaneous
  Country: US (occurrence: US)
  Receive Date: 20140204
  Receipt Date: 20140204
  Transmission Date: 20141002
  Serious: Yes (Hospitalization)
  Sender: FDA-Public Use
  Company Number: US-BAYER-2014-017045

PATIENT
  Age: 45 Year
  Sex: Female
  Weight: 72.56 kg

DRUGS (14)
  1. YAZ [Suspect]
  2. YASMIN [Suspect]
  3. DILAUDID [Concomitant]
     Dosage: UNK
     Route: 042
     Dates: start: 20080319
  4. FENTANYL [Concomitant]
     Dosage: UNK
     Route: 042
     Dates: start: 20080319
  5. FENTANYL [Concomitant]
     Dosage: UNK
     Dates: start: 20080320
  6. ZOFRAN [Concomitant]
     Dosage: 4 MG, UNK
     Route: 042
     Dates: start: 20080320
  7. CEFAZOLIN [Concomitant]
     Dosage: 2 G, UNK
     Route: 042
     Dates: start: 20080320
  8. VALIUM [Concomitant]
     Dosage: 5 MG, UNK
     Route: 042
     Dates: start: 20080320
  9. MAGNESIUM [Concomitant]
     Dosage: 4 G, UNK
     Route: 042
     Dates: start: 20080320
  10. PROPOFOL [Concomitant]
     Dosage: UNK
     Dates: start: 20080320
  11. SUCCINYLCHOLINE CHLORIDE [Concomitant]
     Dosage: 120
     Dates: start: 20080320
  12. ZEMURON [Concomitant]
     Dosage: 45
     Dates: start: 20080320
  13. PHENERGAN [Concomitant]
     Indication: NAUSEA
     Dosage: UNK
     Route: 042
     Dates: start: 20080320
  14. DEMEROL [Concomitant]
     Indication: CHILLS
     Dosage: UNK
     Route: 042
     Dates: start: 20080320

REACTIONS (1)
  - Deep vein thrombosis [None]
